FAERS Safety Report 4616548-0 (Version None)
Quarter: 2005Q1

REPORT INFORMATION
  Report Type: 
  Country: None (occurrence: None)
  Receive Date: 20050318
  Receipt Date: 20050311
  Transmission Date: 20050727
  Serious: Yes (Other)
  Sender: FDA-Public Use
  Company Number: 2005-02-1777

PATIENT

DRUGS (2)
  1. NASONEX (MOMETASONE FUROATE) NASAL CONGESTION [Suspect]
     Dosage: NASAL SPRAY
  2. UNSPECIFIED THERAPEUTIC AGENT [Suspect]

REACTIONS (1)
  - ANOSMIA [None]
